FAERS Safety Report 7328783-1 (Version None)
Quarter: 2011Q1

REPORT INFORMATION
  Report Type: 
  Country: None (occurrence: None)
  Receive Date: 20110303
  Receipt Date: 20110222
  Transmission Date: 20110831
  Serious: Yes (Hospitalization, Other)
  Sender: FDA-Public Use
  Company Number: PHHY2008CA22237

PATIENT
  Sex: Male

DRUGS (7)
  1. SANDOSTATIN LAR [Suspect]
     Dosage: 60 MG, BIW
     Route: 030
     Dates: end: 20091014
  2. SANDOSTATIN LAR [Suspect]
     Dosage: 40 MG, EVERY 4 WEEKS
     Route: 030
  3. SANDOSTATIN LAR [Suspect]
     Dosage: 20 MG, UNK
     Route: 030
  4. SANDOSTATIN LAR [Suspect]
     Indication: CARCINOID TUMOUR
     Dosage: 60 MG, EVERY 4 WEEKS
     Route: 030
     Dates: start: 20031228
  5. SANDOSTATIN LAR [Suspect]
     Dosage: 40 MG, BIW
     Route: 030
  6. SANDOSTATIN LAR [Suspect]
     Dosage: 40 MG, QMO
     Route: 030
  7. SANDOSTATIN LAR [Suspect]
     Dosage: 40 MG, EVERY 2 WEEKS
     Route: 030
     Dates: end: 20110209

REACTIONS (22)
  - JAUNDICE [None]
  - DIARRHOEA [None]
  - ABDOMINAL PAIN [None]
  - PALLIATIVE CARE [None]
  - ASTHENIA [None]
  - SMALL INTESTINAL OBSTRUCTION [None]
  - NAUSEA [None]
  - DEHYDRATION [None]
  - NECK PAIN [None]
  - PAIN [None]
  - CONSTIPATION [None]
  - ABDOMINAL ADHESIONS [None]
  - HEPATIC MASS [None]
  - OEDEMA PERIPHERAL [None]
  - FATIGUE [None]
  - BLOOD PRESSURE DECREASED [None]
  - STAPHYLOCOCCAL SEPSIS [None]
  - INJECTION SITE PAIN [None]
  - VOMITING [None]
  - HYPOPHAGIA [None]
  - FLUSHING [None]
  - INFREQUENT BOWEL MOVEMENTS [None]
